FAERS Safety Report 7867019-X (Version None)
Quarter: 2011Q4

REPORT INFORMATION
  Report Type: 
  Country: None (occurrence: None)
  Receive Date: 20111028
  Receipt Date: 20111020
  Transmission Date: 20120403
  Serious: Yes (Other)
  Sender: FDA-Public Use
  Company Number: DE-TEVA-306054GER

PATIENT
  Age: 27 Year
  Sex: Female
  Weight: 60 kg

DRUGS (1)
  1. AMPICILLIN SODIUM [Suspect]
     Indication: TONSILLITIS
     Route: 048
     Dates: start: 20110917, end: 20110923

REACTIONS (4)
  - LYMPHADENOPATHY [None]
  - C-REACTIVE PROTEIN INCREASED [None]
  - RASH GENERALISED [None]
  - PYREXIA [None]
